FAERS Safety Report 17681994 (Version 3)
Quarter: 2020Q3

REPORT INFORMATION
  Report Type: Spontaneous
  Country: FR (occurrence: FR)
  Receive Date: 20200418
  Receipt Date: 20200914
  Transmission Date: 20201102
  Serious: Yes (Congenital Anomaly, Other)
  Sender: FDA-Public Use
  Company Number: FR-AUROBINDO-AUR-APL-2020-018352

PATIENT
  Sex: Male

DRUGS (3)
  1. VALPROIC ACID. [Suspect]
     Active Substance: VALPROIC ACID
     Indication: PRODUCT USED FOR UNKNOWN INDICATION
     Dosage: UNK
     Route: 064
  2. DEPAKINE CHRONO [Suspect]
     Active Substance: VALPROATE SODIUM
     Indication: PRODUCT USED FOR UNKNOWN INDICATION
     Dosage: 1000 MILLIGRAM, ONCE A DAY
     Route: 064
     Dates: start: 19880628, end: 19890324
  3. DIAZEPAM TABLET [Suspect]
     Active Substance: DIAZEPAM
     Indication: PARTIAL SEIZURES
     Dosage: 2 DOSAGE FORM, ONCE A DAY
     Route: 064
     Dates: start: 19880907, end: 19890324

REACTIONS (27)
  - Disturbance in attention [Not Recovered/Not Resolved]
  - Disturbance in social behaviour [Unknown]
  - Educational problem [Unknown]
  - Nasal disorder [Unknown]
  - Foetal exposure during pregnancy [Unknown]
  - Foetal anticonvulsant syndrome [Unknown]
  - Partial seizures [Unknown]
  - Scoliosis [Unknown]
  - Reading disorder [Not Recovered/Not Resolved]
  - Foot deformity [Unknown]
  - Overweight [Unknown]
  - Hypermobility syndrome [Unknown]
  - Macrocephaly [Unknown]
  - Speech disorder developmental [Unknown]
  - Learning disorder [Unknown]
  - Hypotonia [Unknown]
  - Dysmorphism [Unknown]
  - Oropharyngeal discomfort [Unknown]
  - Ear disorder [Unknown]
  - Dysgraphia [Not Recovered/Not Resolved]
  - Affective disorder [Unknown]
  - Spine malformation [Unknown]
  - Limb malformation [Unknown]
  - Dyslexia [Not Recovered/Not Resolved]
  - Language disorder [Unknown]
  - Sluggishness [Unknown]
  - Memory impairment [Unknown]

NARRATIVE: CASE EVENT DATE: 19890324
